FAERS Safety Report 10078936 (Version 2)
Quarter: 2014Q3

REPORT INFORMATION
  Report Type: Spontaneous
  Country: GB (occurrence: None)
  Receive Date: 20140411
  Receipt Date: 20140812
  Transmission Date: 20150326
  Serious: Yes (Death, Other)
  Sender: FDA-Public Use
  Company Number: AUR-APL-2014-04270

PATIENT
  Age: 61 Year
  Sex: Male

DRUGS (11)
  1. CITALOPRAM [Suspect]
     Active Substance: CITALOPRAM HYDROBROMIDE
     Indication: DEPRESSION
     Route: 048
  2. CODEINE [Suspect]
     Active Substance: CODEINE
     Indication: PAIN
     Dosage: 30 MG, DAILY (IN THE MORNING OF 10-AUG-2012), ORAL
     Route: 048
     Dates: start: 20120809, end: 20120810
  3. AMITRIPTYLINE (AMITRIPTYLINE) [Suspect]
     Active Substance: AMITRIPTYLINE
     Indication: ANALGESIC THERAPY
     Route: 048
  4. SIMVASTATIN (SIMVASTATIN) [Concomitant]
     Active Substance: SIMVASTATIN
  5. QUININE SULPHATE [Suspect]
     Active Substance: QUININE SULFATE
     Indication: ANALGESIC THERAPY
     Route: 048
  6. DIAZEPAM (DIAZEPAM) [Concomitant]
     Active Substance: DIAZEPAM
  7. SILDENAFIL CITRATE (SILDENAFIL CITRATE) [Concomitant]
     Active Substance: SILDENAFIL CITRATE
  8. PARACETAMOL (PARACETAMOL) [Concomitant]
     Active Substance: ACETAMINOPHEN
  9. CITALOPRAM [Suspect]
     Active Substance: CITALOPRAM HYDROBROMIDE
     Indication: PANIC DISORDER
     Route: 048
  10. GABAPENTIN (GABAPENTIN) [Concomitant]
     Active Substance: GABAPENTIN
  11. VITAMIN B COMPOUND STRONG (VITAMIN B COMPOUND) [Concomitant]

REACTIONS (2)
  - Cardiac arrest [None]
  - Prescribed overdose [None]

NARRATIVE: CASE EVENT DATE: 20120810
